FAERS Safety Report 7245350-9 (Version None)
Quarter: 2011Q1

REPORT INFORMATION
  Report Type: 
  Country: None (occurrence: None)
  Receive Date: 20110126
  Receipt Date: 20110114
  Transmission Date: 20110831
  Serious: Yes (Hospitalization)
  Sender: FDA-Public Use
  Company Number: US-MYLANLABS-2011S1001116

PATIENT
  Age: 65 Year
  Sex: Female
  Weight: 63.5 kg

DRUGS (8)
  1. NEXIUM [Concomitant]
     Indication: GASTROOESOPHAGEAL REFLUX DISEASE
     Dates: start: 20100101
  2. ASA [Concomitant]
  3. ONDANSETRON [Suspect]
     Indication: NAUSEA
     Dosage: ONE DOSE ONLY
     Route: 048
     Dates: start: 20101201, end: 20101201
  4. AMITRIPTYLINE [Concomitant]
     Indication: IRRITABLE BOWEL SYNDROME
  5. LISINOPRIL [Concomitant]
     Indication: HYPERTENSION
  6. KLONOPIN [Concomitant]
     Indication: ANXIETY
  7. PRAVASTATIN [Concomitant]
     Indication: BLOOD CHOLESTEROL INCREASED
  8. PULMICORT [Concomitant]
     Indication: ASTHMA
     Route: 055

REACTIONS (2)
  - HEART RATE INCREASED [None]
  - ATRIAL FIBRILLATION [None]
